FAERS Safety Report 7371418-2 (Version None)
Quarter: 2011Q1

REPORT INFORMATION
  Report Type: 
  Country: None (occurrence: None)
  Receive Date: 20110322
  Receipt Date: 20110322
  Transmission Date: 20110831
  Serious: Yes (Other)
  Sender: FDA-Public Use
  Company Number: None

PATIENT
  Sex: Male
  Weight: 74.3899 kg

DRUGS (12)
  1. VITAMIN D [Concomitant]
  2. LIPITOR [Suspect]
     Indication: HYPERCHOLESTEROLAEMIA
     Dosage: 20MG AFTERNOON PO
     Route: 048
     Dates: start: 20110201, end: 20110321
  3. LIPITOR [Suspect]
     Indication: HYPERCHOLESTEROLAEMIA
     Dosage: 20MG AFTERNOON PO
     Route: 048
     Dates: start: 20110101, end: 20110201
  4. LABETALOL [Concomitant]
  5. HYDROCHLOROTHIAZIDE [Concomitant]
  6. COENZYME Q10 [Concomitant]
  7. LOVAZA [Concomitant]
  8. LOSARTAN POTASSIUM [Concomitant]
  9. DYNACIRC [Concomitant]
  10. ASPIRIN [Concomitant]
  11. DIGOXIN [Concomitant]
  12. L-CARNITINE [Concomitant]

REACTIONS (3)
  - MUSCULOSKELETAL PAIN [None]
  - GAIT DISTURBANCE [None]
  - PAIN IN EXTREMITY [None]
